FAERS Safety Report 25617157 (Version 1)
Quarter: 2025Q3

REPORT INFORMATION
  Report Type: Spontaneous
  Country: US (occurrence: US)
  Receive Date: 20250729
  Receipt Date: 20250729
  Transmission Date: 20251021
  Serious: No
  Sender: ELI LILLY AND COMPANY
  Company Number: US-ELI_LILLY_AND_COMPANY-US202507016233

PATIENT
  Age: 46 Year
  Sex: Female

DRUGS (1)
  1. ZEPBOUND [Suspect]
     Active Substance: TIRZEPATIDE
     Indication: Weight control
     Route: 065

REACTIONS (9)
  - Blood glucose abnormal [Recovering/Resolving]
  - Somnolence [Recovering/Resolving]
  - Brain fog [Recovering/Resolving]
  - Insomnia [Recovering/Resolving]
  - Depression [Recovering/Resolving]
  - Influenza like illness [Recovering/Resolving]
  - Intentional product misuse [Unknown]
  - Hypoglycaemia [Unknown]
  - Lethargy [Recovering/Resolving]
